FAERS Safety Report 25281054 (Version 1)
Quarter: 2025Q2

REPORT INFORMATION
  Report Type: Spontaneous
  Country: US (occurrence: US)
  Receive Date: 20250508
  Receipt Date: 20250508
  Transmission Date: 20250717
  Serious: Yes (Other)
  Sender: COOPERSURGICAL
  Company Number: US-COOPERSURGICAL, INC.-2025CPS003491

PATIENT
  Age: 42 Year
  Sex: Female
  Weight: 81.633 kg

DRUGS (1)
  1. PARAGARD T 380A [Suspect]
     Active Substance: COPPER
     Indication: Contraception
     Route: 015
     Dates: start: 20141022

REACTIONS (11)
  - Uterine disorder [Unknown]
  - Hysterectomy [Recovered/Resolved]
  - Complication of device removal [Recovered/Resolved]
  - Endometriosis [Unknown]
  - Depression [Unknown]
  - Affective disorder [Unknown]
  - Post-traumatic stress disorder [Unknown]
  - Emotional disorder [Unknown]
  - Dyspareunia [Unknown]
  - Dysmenorrhoea [Unknown]
  - Muscle spasms [Unknown]

NARRATIVE: CASE EVENT DATE: 20240401
